FAERS Safety Report 4288506-X (Version None)
Quarter: 2004Q1

REPORT INFORMATION
  Report Type: 
  Country: None (occurrence: None)
  Receive Date: 20040205
  Receipt Date: 20040115
  Transmission Date: 20041129
  Serious: Yes (Hospitalization)
  Sender: FDA-Public Use
  Company Number: JP_031202345

PATIENT
  Age: 42 Year
  Sex: Male
  Weight: 74 kg

DRUGS (7)
  1. PERMAX [Suspect]
     Indication: PARKINSON'S DISEASE
     Dosage: 1500 UG/DAY
     Dates: start: 20020101
  2. MENESIT [Concomitant]
  3. SELEGILINE HYDROCHLORIDE [Concomitant]
  4. SYMMETREL [Concomitant]
  5. CABERGOLINE [Concomitant]
  6. DEPAS (ETIZOLAM) [Concomitant]
  7. LENDORM [Concomitant]

REACTIONS (3)
  - HALLUCINATION [None]
  - HALLUCINATION, AUDITORY [None]
  - SUICIDE ATTEMPT [None]
